FAERS Safety Report 19646405 (Version 10)
Quarter: 2023Q2

REPORT INFORMATION
  Report Type: Report from Study
  Country: US (occurrence: US)
  Receive Date: 20210802
  Receipt Date: 20230523
  Transmission Date: 20230722
  Serious: No
  Sender: FDA-Public Use
  Company Number: NVSC2021US168329

PATIENT
  Age: 31 Year
  Sex: Female

DRUGS (4)
  1. TREPROSTINIL [Suspect]
     Active Substance: TREPROSTINIL
     Indication: Pulmonary arterial hypertension
     Dosage: UNK UNK, CONT (100NG/KG/MIN)
     Route: 042
     Dates: start: 20210210
  2. TREPROSTINIL [Suspect]
     Active Substance: TREPROSTINIL
     Dosage: UNK UNK, CONT (120NG/KG/MIN)
     Route: 042
     Dates: start: 20210317
  3. TREPROSTINIL [Suspect]
     Active Substance: TREPROSTINIL
     Dosage: UNK UNK, CONT (120NG/KG/MIN)
     Route: 042
     Dates: start: 202108
  4. TREPROSTINIL [Suspect]
     Active Substance: TREPROSTINIL
     Dosage: UNK UNK, CONT (120NG/KG/MIN)
     Route: 042
     Dates: start: 202103

REACTIONS (9)
  - Dyspepsia [Unknown]
  - Bone swelling [Unknown]
  - Product leakage [Unknown]
  - Device issue [Unknown]
  - Pain in extremity [Unknown]
  - Paraesthesia [Unknown]
  - Headache [Unknown]
  - Chest pain [Recovered/Resolved]
  - Dizziness [Recovered/Resolved]

NARRATIVE: CASE EVENT DATE: 20210902
